FAERS Safety Report 4989923-2 (Version None)
Quarter: 2006Q2

REPORT INFORMATION
  Report Type: 
  Country: None (occurrence: None)
  Receive Date: 20060428
  Receipt Date: 20060417
  Transmission Date: 20061013
  Serious: No
  Sender: FDA-Public Use
  Company Number: 06-0052PO

PATIENT
  Age: 17 Year
  Sex: Female

DRUGS (3)
  1. PONSTYL (MEFENAMIC ACID) [Suspect]
     Indication: WISDOM TEETH REMOVAL
     Dosage: DAILY, ORAL
     Route: 048
     Dates: start: 20060216, end: 20060220
  2. BIRODOGYL (SPIRAMYCINE, METRONIDAZOLE) [Suspect]
     Indication: WISDOM TEETH REMOVAL
     Dosage: DAILY, ORAL
     Route: 048
     Dates: start: 20060216, end: 20060220
  3. CHLORHEXIDINE GLUCONATE SOLUTION [Concomitant]

REACTIONS (1)
  - NO ADVERSE DRUG EFFECT [None]
